FAERS Safety Report 8769544 (Version 1)
Quarter: 2012Q4

REPORT INFORMATION
  Report Type: 
  Country: US (occurrence: US)
  Receive Date: 20120904
  Receipt Date: 20120904
  Transmission Date: 20130627
  Serious: Yes (Other)
  Sender: FDA-Public Use
  Company Number: US-PFIZER INC-2012216616

PATIENT
  Sex: Female

DRUGS (5)
  1. LYRICA [Suspect]
     Dosage: UNK
  2. VICODIN [Concomitant]
     Dosage: UNK
  3. IBUPROFEN [Concomitant]
     Dosage: UNK
  4. NAPROXEN SODIUM [Concomitant]
     Dosage: UNK
  5. ULTRAM [Concomitant]
     Dosage: UNK

REACTIONS (2)
  - Hypertension [Unknown]
  - Weight increased [Unknown]
